FAERS Safety Report 9939037 (Version 1)
Quarter: 2014Q1

REPORT INFORMATION
  Report Type: Spontaneous
  Country: US (occurrence: US)
  Receive Date: 20140303
  Receipt Date: 20140303
  Transmission Date: 20141002
  Serious: No
  Sender: FDA-Public Use
  Company Number: US-ABBVIE-13P-163-1035777-00

PATIENT
  Age: 69 Year
  Sex: Female
  Weight: 69.92 kg

DRUGS (5)
  1. HUMIRA [Suspect]
     Indication: RHEUMATOID ARTHRITIS
     Dates: start: 2006, end: 20121222
  2. MELOXICAM [Concomitant]
     Indication: RHEUMATOID ARTHRITIS
  3. LANTUS [Concomitant]
     Indication: DIABETES MELLITUS
     Dates: start: 2010
  4. JANUMET [Concomitant]
     Indication: DIABETES MELLITUS
  5. LISINOPRIL [Concomitant]
     Indication: BLOOD CHOLESTEROL INCREASED

REACTIONS (1)
  - Joint arthroplasty [Recovering/Resolving]
